FAERS Safety Report 7024455-1 (Version None)
Quarter: 2010Q3

REPORT INFORMATION
  Report Type: 
  Country: None (occurrence: None)
  Receive Date: 20100917
  Receipt Date: 20090623
  Transmission Date: 20110219
  Serious: No
  Sender: FDA-Public Use
  Company Number: 2009-00184

PATIENT
  Age: 24 Year
  Sex: Male
  Weight: 113.3993 kg

DRUGS (1)
  1. ALL ZICAM PRODUCTS [Suspect]
     Dosage: QD, 1 DAY
     Dates: start: 20090201, end: 20090201

REACTIONS (3)
  - NASAL DISCOMFORT [None]
  - OROPHARYNGEAL PAIN [None]
  - PAROSMIA [None]
